FAERS Safety Report 4534774-6 (Version None)
Quarter: 2004Q4

REPORT INFORMATION
  Report Type: 
  Country: None (occurrence: None)
  Receive Date: 20041222
  Receipt Date: 20040224
  Transmission Date: 20050328
  Serious: No
  Sender: FDA-Public Use
  Company Number: US-BRISTOL-MYERS SQUIBB COMPANY-12515557

PATIENT
  Age: 76 Year
  Sex: Male
  Weight: 95 kg

DRUGS (5)
  1. PRAVACHOL [Suspect]
     Indication: BLOOD CHOLESTEROL INCREASED
     Route: 048
     Dates: start: 20020101
  2. LOTREL [Concomitant]
  3. DITROPAN [Concomitant]
  4. ZETIA [Concomitant]
  5. CELEBREX [Concomitant]

REACTIONS (2)
  - ARTHRITIS [None]
  - ASTHENIA [None]
